FAERS Safety Report 25776703 (Version 1)
Quarter: 2025Q3

REPORT INFORMATION
  Report Type: Spontaneous
  Country: US (occurrence: US)
  Receive Date: 20250909
  Receipt Date: 20250909
  Transmission Date: 20251021
  Serious: No
  Sender: DOMPE FARMACEUTICI
  Company Number: US-FARMAPROD-202503-0861

PATIENT
  Sex: Female

DRUGS (6)
  1. OXERVATE [Suspect]
     Active Substance: CENEGERMIN-BKBJ
     Indication: Neurotrophic keratopathy
     Route: 047
     Dates: start: 20250220
  2. VITAMIN D2 [Concomitant]
     Active Substance: ERGOCALCIFEROL
  3. DOXYCYCLINE HYCLATE [Concomitant]
     Active Substance: DOXYCYCLINE HYCLATE
  4. LEVOTHYROXINE SODIUM [Concomitant]
     Active Substance: LEVOTHYROXINE SODIUM
  5. JANTOVEN [Concomitant]
     Active Substance: WARFARIN SODIUM
  6. REFRESH RELIEVA [Concomitant]
     Active Substance: CARBOXYMETHYLCELLULOSE SODIUM\GLYCERIN

REACTIONS (5)
  - Eye pain [Unknown]
  - Ocular discomfort [Unknown]
  - Eye swelling [Unknown]
  - Joint swelling [Unknown]
  - Periorbital pain [Unknown]
